FAERS Safety Report 5155425-6 (Version None)
Quarter: 2006Q4

REPORT INFORMATION
  Report Type: 
  Country: None (occurrence: None)
  Receive Date: 20061114
  Receipt Date: 20061101
  Transmission Date: 20070319
  Serious: Yes (Other)
  Sender: FDA-Public Use
  Company Number: 2006135805

PATIENT
  Age: 63 Year
  Sex: Female
  Weight: 83.9154 kg

DRUGS (3)
  1. ALDACTAZIDE [Suspect]
     Dates: start: 19900101
  2. TAURINE (TAURINE) [Concomitant]
  3. PENICILLINE (BENZYLPENICILLIN SODIUM) [Concomitant]

REACTIONS (13)
  - BLOOD GLUCOSE DECREASED [None]
  - BLOOD PRESSURE INCREASED [None]
  - DIABETES MELLITUS [None]
  - FEELING ABNORMAL [None]
  - FLUID RETENTION [None]
  - HEAD INJURY [None]
  - HYPOTENSION [None]
  - ILL-DEFINED DISORDER [None]
  - INFECTION [None]
  - MIDDLE EAR EFFUSION [None]
  - NEOPLASM [None]
  - SENSORY DISTURBANCE [None]
  - SWELLING FACE [None]
